FAERS Safety Report 18643876 (Version 1)
Quarter: 2020Q4

REPORT INFORMATION
  Report Type: Spontaneous
  Country: GR (occurrence: GR)
  Receive Date: 20201221
  Receipt Date: 20201221
  Transmission Date: 20210114
  Serious: Yes (Hospitalization, Other)
  Sender: FDA-Public Use
  Company Number: GR-MYLANLABS-2020M1099179

PATIENT
  Age: 39 Year
  Sex: Female

DRUGS (4)
  1. OXALIPLATIN. [Suspect]
     Active Substance: OXALIPLATIN
     Indication: ADENOCARCINOMA PANCREAS
     Dosage: UNK
  2. IRINOTECANO MYLAN [Suspect]
     Active Substance: IRINOTECAN HYDROCHLORIDE
     Indication: ADENOCARCINOMA PANCREAS
     Dosage: UNK
  3. CALCIUM FOLINATE [Suspect]
     Active Substance: LEUCOVORIN CALCIUM
     Indication: ADENOCARCINOMA PANCREAS
     Dosage: UNK
  4. FLUOROURACIL. [Suspect]
     Active Substance: FLUOROURACIL
     Indication: ADENOCARCINOMA PANCREAS
     Dosage: UNK

REACTIONS (2)
  - Off label use [Unknown]
  - Neurotoxicity [Recovering/Resolving]
